FAERS Safety Report 12803940 (Version 1)
Quarter: 2016Q4

REPORT INFORMATION
  Report Type: Spontaneous
  Country: AU (occurrence: AU)
  Receive Date: 20161003
  Receipt Date: 20161003
  Transmission Date: 20170207
  Serious: Yes (Other)
  Sender: FDA-Public Use
  Company Number: AU-PFIZER INC-2016457318

PATIENT
  Age: 60 Year
  Sex: Female

DRUGS (5)
  1. RIFAMPICIN [Concomitant]
     Active Substance: RIFAMPIN
     Indication: OSTEOMYELITIS BACTERIAL
     Dosage: 600 MG, DAILY
     Route: 048
  2. COLISTIN [Suspect]
     Active Substance: COLISTIN
     Indication: OSTEOMYELITIS BACTERIAL
     Dosage: 150 MG, 2X/DAY
     Route: 042
  3. AMIKACIN SULFATE. [Suspect]
     Active Substance: AMIKACIN SULFATE
     Dosage: 750 MG, UNK (REDUCED TO THRICE WEEKLY)
  4. AMIKACIN SULFATE. [Suspect]
     Active Substance: AMIKACIN SULFATE
     Indication: OSTEOMYELITIS BACTERIAL
     Dosage: 750 MG, DAILY
     Route: 042
  5. FUSIDIC ACID [Concomitant]
     Active Substance: FUSIDIC ACID
     Indication: OSTEOMYELITIS BACTERIAL
     Dosage: 500 MG, 2X/DAY
     Route: 048

REACTIONS (3)
  - Renal impairment [Recovering/Resolving]
  - Deafness neurosensory [Unknown]
  - Drug ineffective [Unknown]
